FAERS Safety Report 5195842-1 (Version None)
Quarter: 2006Q4

REPORT INFORMATION
  Report Type: 
  Country: None (occurrence: None)
  Receive Date: 20061227
  Receipt Date: 20061213
  Transmission Date: 20070319
  Serious: Yes (Death, Hospitalization)
  Sender: FDA-Public Use
  Company Number: 012538

PATIENT
  Sex: Male

DRUGS (6)
  1. PRIALT [Suspect]
     Indication: PAIN
     Dosage: 0.29 UG, ONCE/HOUR, INTRATHECAL; UG ONCE/HOUR INTRATHECAL
     Route: 037
     Dates: start: 20060720, end: 20060101
  2. PRIALT [Suspect]
     Indication: PAIN
     Dosage: 0.29 UG, ONCE/HOUR, INTRATHECAL; UG ONCE/HOUR INTRATHECAL
     Route: 037
     Dates: start: 20060101, end: 20060919
  3. OXYCONTIN [Concomitant]
  4. LOVASTATIN [Concomitant]
  5. COREG [Concomitant]
  6. ENALAPRIL W/HYDROCHLOROTHIAZIDE (ENALAPRIL, HYDROCHLOROTHIAZIDE) [Concomitant]

REACTIONS (5)
  - ANURIA [None]
  - NECROSIS [None]
  - OSTEONECROSIS [None]
  - RENAL FAILURE ACUTE [None]
  - RHABDOMYOLYSIS [None]
